FAERS Safety Report 4467887-8 (Version None)
Quarter: 2004Q4

REPORT INFORMATION
  Report Type: 
  Country: None (occurrence: None)
  Receive Date: 20041004
  Receipt Date: 20041004
  Transmission Date: 20050328
  Serious: Yes (Other)
  Sender: FDA-Public Use
  Company Number: None

PATIENT
  Age: 90 Year
  Sex: Male
  Weight: 61.2 kg

DRUGS (3)
  1. OXYBUTYNIN CHLORIDE [Suspect]
  2. ALENDRONATE SODIUM [Concomitant]
  3. LISINOPRIL [Concomitant]

REACTIONS (2)
  - DIZZINESS [None]
  - VISION BLURRED [None]
